FAERS Safety Report 18997183 (Version 2)
Quarter: 2021Q2

REPORT INFORMATION
  Report Type: Report from Study
  Country: ES (occurrence: ES)
  Receive Date: 20210311
  Receipt Date: 20210401
  Transmission Date: 20210717
  Serious: Yes (Hospitalization, Other)
  Sender: FDA-Public Use
  Company Number: DE-ALNYLAM PHARMACEUTICALS, INC.-ALN-2021-000572

PATIENT

DRUGS (1)
  1. LUMASIRAN. [Suspect]
     Active Substance: LUMASIRAN
     Indication: HYPEROXALURIA
     Dosage: 150 MILLIGRAM
     Route: 058
     Dates: start: 20210302

REACTIONS (1)
  - Peritonitis [Unknown]

NARRATIVE: CASE EVENT DATE: 20210304
